FAERS Safety Report 13892091 (Version 4)
Quarter: 2017Q4

REPORT INFORMATION
  Report Type: Report from Study
  Country: GB (occurrence: TR)
  Receive Date: 20170822
  Receipt Date: 20171010
  Transmission Date: 20180320
  Serious: Yes (Hospitalization)
  Sender: FDA-Public Use
  Company Number: GB-JNJFOC-20170818415

PATIENT
  Age: 65 Year
  Sex: Male

DRUGS (2)
  1. STELARA [Suspect]
     Active Substance: USTEKINUMAB
     Indication: PSORIASIS
     Route: 058
     Dates: start: 20140404
  2. OMEPRAZOLE. [Concomitant]
     Active Substance: OMEPRAZOLE
     Indication: DYSPNOEA
     Route: 048
     Dates: start: 20160613

REACTIONS (4)
  - Fall [Unknown]
  - Lower respiratory tract infection [Recovered/Resolved]
  - Pyelonephritis acute [Recovered/Resolved]
  - Traumatic renal injury [Unknown]

NARRATIVE: CASE EVENT DATE: 20170810
